FAERS Safety Report 4519307-2 (Version None)
Quarter: 2004Q4

REPORT INFORMATION
  Report Type: 
  Country: None (occurrence: None)
  Receive Date: 20041206
  Receipt Date: 20041115
  Transmission Date: 20050328
  Serious: Yes (Other)
  Sender: FDA-Public Use
  Company Number: JP-GLAXOSMITHKLINE-B0357159A

PATIENT
  Age: 59 Year
  Sex: Female

DRUGS (2)
  1. ZOVIRAX [Suspect]
     Indication: HERPES ZOSTER
     Dosage: 800MG FIVE TIMES PER DAY
     Route: 048
     Dates: start: 20041015, end: 20041016
  2. LOXONIN [Concomitant]
     Route: 048

REACTIONS (5)
  - ANAPHYLACTIC SHOCK [None]
  - BLOOD PRESSURE DECREASED [None]
  - DEPRESSED LEVEL OF CONSCIOUSNESS [None]
  - LYMPHOCYTE STIMULATION TEST NEGATIVE [None]
  - RASH PRURITIC [None]
